FAERS Safety Report 24877087 (Version 1)
Quarter: 2025Q1

REPORT INFORMATION
  Report Type: Spontaneous
  Country: CN (occurrence: CN)
  Receive Date: 20250123
  Receipt Date: 20250123
  Transmission Date: 20250409
  Serious: No
  Sender: MERCK
  Company Number: CN-009507513-2501CHN006264

PATIENT
  Age: 31 Year
  Sex: Male

DRUGS (1)
  1. LAGEVRIO [Suspect]
     Active Substance: MOLNUPIRAVIR
     Indication: Gastrointestinal infection

REACTIONS (1)
  - Product use in unapproved indication [Unknown]
